FAERS Safety Report 7108390-6 (Version None)
Quarter: 2010Q4

REPORT INFORMATION
  Report Type: 
  Country: None (occurrence: None)
  Receive Date: 20101117
  Receipt Date: 20101109
  Transmission Date: 20110411
  Serious: Yes (Hospitalization, Congenital Anomaly)
  Sender: FDA-Public Use
  Company Number: A0871461A

PATIENT
  Sex: Female
  Weight: 0.9 kg

DRUGS (2)
  1. PAXIL [Suspect]
     Indication: MAJOR DEPRESSION
  2. RISPERDAL [Concomitant]

REACTIONS (4)
  - BICUSPID AORTIC VALVE [None]
  - DRUG EXPOSURE DURING PREGNANCY [None]
  - PATENT DUCTUS ARTERIOSUS [None]
  - VENTRICULAR SEPTAL DEFECT [None]
